FAERS Safety Report 5501460-5 (Version None)
Quarter: 2007Q4

REPORT INFORMATION
  Report Type: 
  Country: None (occurrence: None)
  Receive Date: 20071018
  Receipt Date: 20070308
  Transmission Date: 20080405
  Serious: Yes (Death)
  Sender: FDA-Public Use
  Company Number: 2007020038

PATIENT
  Age: 25 Year
  Sex: Female

DRUGS (4)
  1. NEURONTIN [Suspect]
     Indication: CONVULSION
     Dosage: ORAL
     Route: 048
     Dates: start: 20020909, end: 20030301
  2. NEURONTIN [Suspect]
     Indication: PAIN
     Dosage: ORAL
     Route: 048
     Dates: start: 20020909, end: 20030301
  3. PAXIL [Concomitant]
  4. ZYPREXA [Concomitant]

REACTIONS (1)
  - COMPLETED SUICIDE [None]
